FAERS Safety Report 5007694-0 (Version None)
Quarter: 2006Q2

REPORT INFORMATION
  Report Type: 
  Country: None (occurrence: None)
  Receive Date: 20060522
  Receipt Date: 20060420
  Transmission Date: 20061013
  Serious: Yes (Death)
  Sender: FDA-Public Use
  Company Number: PHBS2006JP05953

PATIENT
  Age: 68 Year
  Sex: Male

DRUGS (5)
  1. VOLTAREN [Suspect]
     Dosage: UNK, UNK
     Route: 054
     Dates: start: 20060414, end: 20060415
  2. LOXOPROFEN SODIUM [Concomitant]
     Route: 048
     Dates: start: 20060413, end: 20060424
  3. HARNAL [Concomitant]
     Route: 048
     Dates: end: 20060420
  4. OMEPRAL [Concomitant]
     Route: 048
     Dates: end: 20060420
  5. SELOKEN [Concomitant]
     Route: 048
     Dates: end: 20060420

REACTIONS (1)
  - ANAPHYLACTIC SHOCK [None]
